FAERS Safety Report 17450243 (Version 1)
Quarter: 2020Q1

REPORT INFORMATION
  Report Type: Spontaneous
  Country: US (occurrence: US)
  Receive Date: 20200221
  Receipt Date: 20200221
  Transmission Date: 20200409
  Serious: No
  Sender: FDA-Public Use
  Company Number: None

PATIENT
  Age: 70 Year
  Sex: Female
  Weight: 51.3 kg

DRUGS (10)
  1. LEVOTHYROXINE 70 MCG [Concomitant]
  2. BABY ASPIRIN 81 MG [Concomitant]
  3. PROLIA [Suspect]
     Active Substance: DENOSUMAB
     Indication: OSTEOPOROSIS
     Dosage: ?          OTHER FREQUENCY:1 EVERY 6 MONTH;?
     Route: 042
     Dates: start: 20191224
  4. VITAMIN D [Concomitant]
     Active Substance: VITAMIN D NOS
  5. ROSUVASTATIN 5 MG [Concomitant]
     Active Substance: ROSUVASTATIN
  6. LISINOPRIL 5 MG [Concomitant]
     Active Substance: LISINOPRIL
  7. VITAMIN D [Concomitant]
     Active Substance: VITAMIN D NOS
  8. CALCIUM [Concomitant]
     Active Substance: CALCIUM
  9. PROLIA [Concomitant]
     Active Substance: DENOSUMAB
  10. MULTIVITAMIN [Concomitant]
     Active Substance: VITAMINS

REACTIONS (7)
  - Agitation [None]
  - Blindness transient [None]
  - Migraine [None]
  - Visual impairment [None]
  - Transient ischaemic attack [None]
  - Headache [None]
  - Hypertension [None]

NARRATIVE: CASE EVENT DATE: 20200106
